FAERS Safety Report 21583800 (Version 1)
Quarter: 2022Q4

REPORT INFORMATION
  Report Type: Spontaneous
  Country: US (occurrence: US)
  Receive Date: 20221111
  Receipt Date: 20221111
  Transmission Date: 20230113
  Serious: Yes (Life-Threatening, Hospitalization, Other)
  Sender: FDA-Public Use
  Company Number: None

PATIENT
  Age: 74 Year
  Sex: Male

DRUGS (1)
  1. METFORMIN HYDROCHLORIDE [Suspect]
     Active Substance: METFORMIN HYDROCHLORIDE
     Indication: Product used for unknown indication
     Route: 065

REACTIONS (6)
  - Cardiac arrest [Recovered/Resolved]
  - Toxicity to various agents [Recovered/Resolved]
  - Vasoplegia syndrome [Recovered/Resolved]
  - Lactic acidosis [Recovered/Resolved]
  - Overdose [Unknown]
  - Prescription drug used without a prescription [Unknown]
